FAERS Safety Report 7447674-9 (Version None)
Quarter: 2011Q2

REPORT INFORMATION
  Report Type: 
  Country: None (occurrence: None)
  Receive Date: 20110429
  Receipt Date: 20110118
  Transmission Date: 20111010
  Serious: No
  Sender: FDA-Public Use
  Company Number: US-ASTRAZENECA-2011SE03452

PATIENT
  Age: 68 Year
  Sex: Female

DRUGS (2)
  1. LYRICA [Concomitant]
  2. NEXIUM [Suspect]
     Route: 048

REACTIONS (3)
  - BLINDNESS [None]
  - FIBROMYALGIA [None]
  - HERPES ZOSTER [None]
